FAERS Safety Report 12474634 (Version 1)
Quarter: 2016Q2

REPORT INFORMATION
  Report Type: Spontaneous
  Country: US (occurrence: None)
  Receive Date: 20160616
  Receipt Date: 20160616
  Transmission Date: 20160815
  Serious: Yes (Other)
  Sender: FDA-Public Use
  Company Number: None

PATIENT
  Age: 69 Year
  Sex: Male
  Weight: 87.8 kg

DRUGS (1)
  1. AMICAR [Suspect]
     Active Substance: AMINOCAPROIC ACID
     Indication: TRANSURETHRAL PROSTATECTOMY
     Dosage: 300ML/HR HOURLY IRRIGATION/INTRAVESICULARLY
     Route: 043
     Dates: start: 20160415

REACTIONS (3)
  - Product packaging confusion [None]
  - Circumstance or information capable of leading to device use error [None]
  - Incorrect route of drug administration [None]

NARRATIVE: CASE EVENT DATE: 20160415
